FAERS Safety Report 20041069 (Version 1)
Quarter: 2021Q4

REPORT INFORMATION
  Report Type: Report from Study
  Country: CA (occurrence: CA)
  Receive Date: 20211107
  Receipt Date: 20211107
  Transmission Date: 20220304
  Serious: Yes (Other)
  Sender: FDA-Public Use
  Company Number: CA-TEVA-2021-CA-1974617

PATIENT
  Age: 52 Year
  Sex: Male

DRUGS (6)
  1. CINQAIR [Suspect]
     Active Substance: RESLIZUMAB
     Indication: Asthma
     Dosage: LAST INFUSION DATE: 30-SEP-2021
     Route: 042
     Dates: start: 20171025
  2. NEXIUM [Concomitant]
     Active Substance: ESOMEPRAZOLE MAGNESIUM
  3. VITAMIN B3 [Concomitant]
     Active Substance: NIACIN
  4. ELIQUIS [Concomitant]
     Active Substance: APIXABAN
  5. PULMICORT TURBUHALER [Concomitant]
     Active Substance: BUDESONIDE
  6. CALCIUM [Concomitant]
     Active Substance: CALCIUM

REACTIONS (1)
  - Cholangitis sclerosing [Unknown]
